FAERS Safety Report 4616574-1 (Version None)
Quarter: 2005Q1

REPORT INFORMATION
  Report Type: 
  Country: None (occurrence: None)
  Receive Date: 20050318
  Receipt Date: 20050302
  Transmission Date: 20050727
  Serious: Yes (Death)
  Sender: FDA-Public Use
  Company Number: L04-USA-07403-62

PATIENT
  Age: 25 Year
  Sex: Male

DRUGS (6)
  1. PROPRANOLOL [Suspect]
     Dosage: UNK
     Route: 065
  2. DILTIAZEM [Suspect]
     Dosage: UNK
     Route: 065
  3. ETHANOL [Suspect]
     Dosage: UNK
  4. PROPRANOLOL [Suspect]
     Dosage: UNK
     Route: 065
  5. DILTIAZEM [Suspect]
     Dosage: UNK
     Route: 065
  6. ETHANOL [Suspect]
     Dosage: UNK
     Route: 065

REACTIONS (13)
  - ADVERSE DRUG REACTION [None]
  - ALCOHOL USE [None]
  - ANION GAP INCREASED [None]
  - BLOOD LACTIC ACID INCREASED [None]
  - CARDIAC ARREST [None]
  - COMA [None]
  - ELECTROMECHANICAL DISSOCIATION [None]
  - METABOLIC ACIDOSIS [None]
  - MULTIPLE DRUG OVERDOSE [None]
  - TACHYCARDIA [None]
  - THERAPY NON-RESPONDER [None]
  - URINE KETONE BODY PRESENT [None]
  - VENTRICULAR FIBRILLATION [None]
